FAERS Safety Report 14516530 (Version 2)
Quarter: 2018Q1

REPORT INFORMATION
  Report Type: Spontaneous
  Country: ES (occurrence: ES)
  Receive Date: 20180212
  Receipt Date: 20180301
  Transmission Date: 20180509
  Serious: Yes (Hospitalization, Other)
  Sender: FDA-Public Use
  Company Number: ES-009507513-1802ESP003516

PATIENT
  Age: 67 Year
  Sex: Male
  Weight: 71.9 kg

DRUGS (11)
  1. CLEXANE (ENOXAPARIN SODIUM) [Concomitant]
     Active Substance: ENOXAPARIN SODIUM
     Dosage: 100 MG, EVERY 24 HOURS
     Dates: start: 20180118
  2. IBUPROFEN. [Concomitant]
     Active Substance: IBUPROFEN
     Dosage: 600 MG, EVERY 8 HOURS
  3. OMEPRAZOLE. [Concomitant]
     Active Substance: OMEPRAZOLE
     Dosage: 20 MG, EVERY 24 HOURS
  4. TARGIN [Concomitant]
     Active Substance: NALOXONE HYDROCHLORIDE\OXYCODONE HYDROCHLORIDE
     Dosage: 10/5MG EVERY 12 HOURS
     Dates: start: 20180118
  5. METFORMIN [Concomitant]
     Active Substance: METFORMIN HYDROCHLORIDE
     Dosage: 850 MG, DAILY
  6. KEYTRUDA [Suspect]
     Active Substance: PEMBROLIZUMAB
     Indication: NON-SMALL CELL LUNG CANCER
     Dosage: 2 MG/KG, Q3W, 1ST CYCLE
     Route: 042
     Dates: start: 20180130, end: 20180131
  7. ATORVASTATIN [Concomitant]
     Active Substance: ATORVASTATIN
     Dosage: 30 MG, EVERY 24 HOURS
  8. SPIRIVA [Concomitant]
     Active Substance: TIOTROPIUM BROMIDE MONOHYDRATE
     Dosage: 2.5 MICROGRAM, EVERY 24 HOURS
  9. GLIMEPIRIDE. [Concomitant]
     Active Substance: GLIMEPIRIDE
     Dosage: 2 MG, DAILY
  10. RAMIPRIL. [Concomitant]
     Active Substance: RAMIPRIL
     Dosage: 10 MG, EVERY 24 HOURS
  11. HYDROCHLOROTHIAZIDE. [Concomitant]
     Active Substance: HYDROCHLOROTHIAZIDE
     Dosage: 25 MG, EVERY 24 HOURS

REACTIONS (11)
  - Splenic lesion [Unknown]
  - Hiatus hernia [Unknown]
  - Benign prostatic hyperplasia [Unknown]
  - Spinal osteoarthritis [Unknown]
  - Hepatitis [Recovering/Resolving]
  - Malignant neoplasm progression [Unknown]
  - Toxicity to various agents [Unknown]
  - Renal cyst [Unknown]
  - Bladder diverticulum [Unknown]
  - Aortic arteriosclerosis [Unknown]
  - Emphysema [Unknown]

NARRATIVE: CASE EVENT DATE: 20180131
